FAERS Safety Report 13871233 (Version 2)
Quarter: 2017Q3

REPORT INFORMATION
  Report Type: Spontaneous
  Country: JP (occurrence: JP)
  Receive Date: 20170816
  Receipt Date: 20170823
  Transmission Date: 20171127
  Serious: Yes (Other)
  Sender: FDA-Public Use
  Company Number: JP-TEVA-795855ISR

PATIENT
  Age: 20 Year
  Sex: Female

DRUGS (6)
  1. TRISENOX [Suspect]
     Active Substance: ARSENIC TRIOXIDE
     Indication: ACUTE PROMYELOCYTIC LEUKAEMIA
     Route: 065
  2. AMNOLAKE TABLETS 2MG [Concomitant]
     Dosage: 2MG
  3. MITOXANTRONE [Concomitant]
     Active Substance: MITOXANTRONE HYDROCHLORIDE
  4. DAUNOMYCIN [Concomitant]
     Active Substance: DAUNORUBICIN
  5. CYLOCIDE 100 MG [Concomitant]
     Dosage: 100MG
  6. CYLOCIDE 100 MG [Concomitant]
     Dosage: 1G

REACTIONS (1)
  - Hypoaesthesia [Unknown]
